FAERS Safety Report 5049397-2 (Version None)
Quarter: 2006Q3

REPORT INFORMATION
  Report Type: 
  Country: None (occurrence: None)
  Receive Date: 20060706
  Receipt Date: 20060623
  Transmission Date: 20061208
  Serious: Yes (Death, Life-Threatening, Hospitalization)
  Sender: FDA-Public Use
  Company Number: 200610392BYL

PATIENT
  Age: 94 Year
  Sex: Female
  Weight: 39.5 kg

DRUGS (11)
  1. AVELOX [Suspect]
     Indication: PNEUMONIA STAPHYLOCOCCAL
     Dosage: 400 MG, QD, ORAL
     Route: 048
     Dates: start: 20060306, end: 20060309
  2. LASIX [Concomitant]
  3. TIAPRIM [Concomitant]
  4. LIPOBLOCK [Concomitant]
  5. NIKORANMART [Concomitant]
  6. GASPORT-D [Concomitant]
  7. METLIGINE [Concomitant]
  8. TWINPAL [Concomitant]
  9. MICROFILLIN [Concomitant]
  10. BELLAMITOL [Concomitant]
  11. SEFIROM [Concomitant]

REACTIONS (4)
  - MULTI-ORGAN FAILURE [None]
  - PURPURA [None]
  - RASH [None]
  - RENAL IMPAIRMENT [None]
